FAERS Safety Report 4394120-8 (Version None)
Quarter: 2004Q3

REPORT INFORMATION
  Report Type: 
  Country: None (occurrence: None)
  Receive Date: 20040706
  Receipt Date: 20040626
  Transmission Date: 20050211
  Serious: Yes (Other)
  Sender: FDA-Public Use
  Company Number: 2004-06-2205

PATIENT
  Age: 42 Year
  Sex: Female

DRUGS (2)
  1. RIBAVIRIN [Suspect]
     Indication: HEPATITIS C
     Dosage: ORAL
     Route: 048
  2. INTERFERON ALFA-2B INJECTABLE  POWDER [Suspect]
     Indication: HEPATITIS C
     Dosage: SUBCUTANEOUS
     Route: 058

REACTIONS (4)
  - FACIAL PARESIS [None]
  - HERPES SIMPLEX [None]
  - HERPETIC STOMATITIS [None]
  - THERAPY NON-RESPONDER [None]
